FAERS Safety Report 8529402 (Version 5)
Quarter: 2014Q2

REPORT INFORMATION
  Report Type: Spontaneous
  Country: GR (occurrence: GR)
  Receive Date: 20120425
  Receipt Date: 20140402
  Transmission Date: 20141212
  Serious: Yes (Other)
  Sender: FDA-Public Use
  Company Number: GR-JNJFOC-20120407611

PATIENT
  Sex: Female

DRUGS (8)
  1. STELARA [Suspect]
     Indication: PSORIATIC ARTHROPATHY
     Route: 058
     Dates: end: 20120413
  2. STELARA [Suspect]
     Indication: PSORIATIC ARTHROPATHY
     Route: 058
     Dates: start: 20100414
  3. STELARA [Suspect]
     Indication: PSORIATIC ARTHROPATHY
     Route: 058
     Dates: start: 20120710, end: 20120710
  4. STELARA [Suspect]
     Indication: PSORIASIS
     Route: 058
     Dates: start: 20100414
  5. STELARA [Suspect]
     Indication: PSORIASIS
     Route: 058
     Dates: start: 20120710, end: 20120710
  6. STELARA [Suspect]
     Indication: PSORIASIS
     Route: 058
     Dates: end: 20120413
  7. UNSPECIFIED MEDICATION FOR HYPOTHYROIDISM [Concomitant]
     Indication: HYPOTHYROIDISM
     Route: 065
  8. ANTIEPILEPTIC MEDICATION [Concomitant]
     Indication: EPILEPSY
     Route: 065

REACTIONS (4)
  - Swelling face [Unknown]
  - Injection site reaction [Unknown]
  - Peripheral swelling [Unknown]
  - Drug effect decreased [Unknown]
